FAERS Safety Report 4738747-X (Version None)
Quarter: 2005Q3

REPORT INFORMATION
  Report Type: 
  Country: None (occurrence: None)
  Receive Date: 20050804
  Receipt Date: 20050726
  Transmission Date: 20060218
  Serious: Yes (Other)
  Sender: FDA-Public Use
  Company Number: 2005100916

PATIENT
  Age: 66 Year
  Sex: Female
  Weight: 50 kg

DRUGS (3)
  1. LYRICA [Suspect]
     Indication: NEUROPATHIC PAIN
     Dosage: 600 MG (300 MG, 2 IN 1 D), ORAL
     Route: 048
     Dates: start: 20050210, end: 20050701
  2. NOVAMINSULFON ^BRAUN^ (METAMIZOLE SODIUM) [Concomitant]
  3. OMEPRAZOLE [Concomitant]

REACTIONS (10)
  - CHILLS [None]
  - DIZZINESS [None]
  - DYSPNOEA [None]
  - HEMIANOPIA [None]
  - HYPERAESTHESIA [None]
  - MEMORY IMPAIRMENT [None]
  - NAUSEA [None]
  - TACHYCARDIA [None]
  - VISUAL DISTURBANCE [None]
  - WEIGHT DECREASED [None]
